FAERS Safety Report 4796888-5 (Version None)
Quarter: 2005Q4

REPORT INFORMATION
  Report Type: 
  Country: None (occurrence: None)
  Receive Date: 20051006
  Receipt Date: 20051006
  Transmission Date: 20060501
  Serious: Yes (Life-Threatening)
  Sender: FDA-Public Use
  Company Number: None

PATIENT
  Age: 56 Year
  Sex: Female
  Weight: 60 kg

DRUGS (7)
  1. LINEZOLID [Suspect]
     Indication: ENTEROCOCCAL SEPSIS
     Dosage: 600MG IV Q 12 H
     Route: 042
     Dates: start: 20050108, end: 20050120
  2. FESO4 [Concomitant]
  3. INSULIN [Concomitant]
  4. PERCOCET [Concomitant]
  5. SERTRALINE [Concomitant]
  6. METOCLOPRAMIDE [Concomitant]
  7. LANSOPRAZOLE [Concomitant]

REACTIONS (1)
  - THROMBOCYTOPENIA [None]
